FAERS Safety Report 9450477 (Version 1)
Quarter: 2013Q3

REPORT INFORMATION
  Report Type: Spontaneous
  Country: FR (occurrence: None)
  Receive Date: 20130807
  Receipt Date: 20130807
  Transmission Date: 20140515
  Serious: Yes (Other)
  Sender: FDA-Public Use
  Company Number: ACX-2013-000360

PATIENT
  Age: 35 Year
  Sex: Female

DRUGS (2)
  1. PYLERA [Suspect]
     Indication: HELICOBACTER INFECTION
     Dates: start: 20130527, end: 20130604
  2. OMEPRAZOLE (OMEPRAZOLE) [Concomitant]

REACTIONS (1)
  - Angioedema [None]
